FAERS Safety Report 21835654 (Version 1)
Quarter: 2023Q1

REPORT INFORMATION
  Report Type: Report from Study
  Country: US (occurrence: US)
  Receive Date: 20230109
  Receipt Date: 20230109
  Transmission Date: 20230417
  Serious: No
  Sender: FDA-Public Use
  Company Number: US-ABBVIE-4233946

PATIENT
  Sex: Male

DRUGS (1)
  1. HUMIRA [Suspect]
     Active Substance: ADALIMUMAB
     Indication: Ankylosing spondylitis
     Dosage: CITRATE FREE?EVENT ONSET 2022
     Route: 058
     Dates: start: 20221013

REACTIONS (2)
  - Upper respiratory tract infection [Recovering/Resolving]
  - Nasopharyngitis [Unknown]
